FAERS Safety Report 10387734 (Version 1)
Quarter: 2014Q1

REPORT INFORMATION
  Report Type: Spontaneous
  Country: US (occurrence: None)
  Receive Date: 20140306
  Receipt Date: 20140306
  Transmission Date: 20141002
  Serious: Yes (Other)
  Sender: FDA-Public Use
  Company Number: 163-21880-13082285

PATIENT
  Age: 63 Year
  Sex: Male
  Weight: 92.81 kg

DRUGS (13)
  1. REVLIMID (LENALIDOMIDE) (5 MILLIGRAM, CAPSULES) [Suspect]
     Indication: PLASMA CELL MYELOMA
     Dosage: 5 MG, 14 IN 21 D, PO
     Route: 048
     Dates: start: 20080801
  2. MELPHALAN [Suspect]
     Indication: PRODUCT USED FOR UNKNOWN INDICATION
     Dates: start: 200703
  3. VELCADE (BORTEZOMIB) [Concomitant]
  4. DEXAMETHASONE (DEXAMETHASONE) (TABLETS) [Concomitant]
  5. MULTIVITAMINS (MULTIVITAMINS) (CAPSULES) [Concomitant]
  6. TYLENOL (PARACETAMOL) (TABLETS) [Concomitant]
  7. BABY ASPIRIN (ACETYLSALICYLIC ACID) (TABLETS) [Concomitant]
  8. ALEVE (NAPROXEN SODIUM) (TABLETS) [Concomitant]
  9. ADVIL (IBUPROFEN) (TABLETS) [Concomitant]
  10. VALTREX (VALACICLOVIR HYDROCHLORIDE) (TABLETS) [Concomitant]
  11. VITAMIN B12 (CYANOCOBALAMIN) (TABLETS) [Concomitant]
  12. ASPIRIN (TABLETS) [Concomitant]
  13. TUMS (CALCIUM CARBONATE) (CHEWABLE TABLET) [Concomitant]

REACTIONS (3)
  - Liver disorder [None]
  - Plasma cell myeloma [None]
  - Fatigue [None]
